FAERS Safety Report 8727418 (Version 2)
Quarter: 2012Q4

REPORT INFORMATION
  Report Type: 
  Country: US (occurrence: US)
  Receive Date: 20120816
  Receipt Date: 20120921
  Transmission Date: 20130627
  Serious: Yes (Other)
  Sender: FDA-Public Use
  Company Number: US-ROCHE-1065792

PATIENT
  Age: 25 Year
  Sex: Female
  Weight: 54.48 kg

DRUGS (2)
  1. ACCUTANE [Suspect]
     Indication: ACNE CYSTIC
     Route: 065
     Dates: start: 199910, end: 200005
  2. ACCUTANE [Suspect]
     Route: 065
     Dates: start: 2004

REACTIONS (7)
  - Proctitis [Unknown]
  - Inflammatory bowel disease [Unknown]
  - Intestinal haemorrhage [Unknown]
  - Intestinal obstruction [Unknown]
  - Depressed mood [Unknown]
  - Dry skin [Unknown]
  - Lip dry [Unknown]
